FAERS Safety Report 12395495 (Version 2)
Quarter: 2017Q2

REPORT INFORMATION
  Report Type: Spontaneous
  Country: US (occurrence: US)
  Receive Date: 20160523
  Receipt Date: 20170613
  Transmission Date: 20170830
  Serious: No
  Sender: FDA-Public Use
  Company Number: US-ENDO PHARMACEUTICALS INC.-2015-001515

PATIENT
  Age: 12 Year
  Sex: Male
  Weight: 84 kg

DRUGS (1)
  1. SUPPRELIN LA [Suspect]
     Active Substance: HISTRELIN ACETATE
     Indication: PRECOCIOUS PUBERTY
     Route: 065
     Dates: start: 20110502, end: 201509

REACTIONS (5)
  - Device breakage [Recovered/Resolved]
  - Implant site scar [Unknown]
  - Migration of implanted drug [Recovered/Resolved]
  - Delayed puberty [Recovered/Resolved]
  - Incorrect drug administration duration [Recovered/Resolved]

NARRATIVE: CASE EVENT DATE: 20110502
